FAERS Safety Report 11815647 (Version 1)
Quarter: 2015Q4

REPORT INFORMATION
  Report Type: Spontaneous
  Country: US (occurrence: US)
  Receive Date: 20151209
  Receipt Date: 20151209
  Transmission Date: 20160305
  Serious: No
  Sender: FDA-Public Use
  Company Number: PHHY2015US159610

PATIENT
  Sex: Female

DRUGS (1)
  1. DILTIAZEM SANDOZ [Suspect]
     Active Substance: DILTIAZEM HYDROCHLORIDE
     Indication: HYPERTENSION
     Dosage: 240 MG, UNK
     Route: 065

REACTIONS (4)
  - Hypersensitivity [Unknown]
  - Hypertension [Unknown]
  - Heart rate increased [Unknown]
  - Drug ineffective [Unknown]
